FAERS Safety Report 4470726-2 (Version None)
Quarter: 2004Q4

REPORT INFORMATION
  Report Type: 
  Country: None (occurrence: None)
  Receive Date: 20041006
  Receipt Date: 20040922
  Transmission Date: 20050328
  Serious: Yes (Death)
  Sender: FDA-Public Use
  Company Number: 2003GB03068

PATIENT
  Age: 80 Year
  Sex: Male

DRUGS (5)
  1. CASODEX [Suspect]
     Indication: PROSTATE CANCER
     Dosage: 50 MG QD PO
     Route: 048
     Dates: start: 20040813
  2. CRESTOR [Concomitant]
  3. ASPIRIN [Concomitant]
  4. MOVICOL [Concomitant]
  5. OTOMIZE [Concomitant]

REACTIONS (2)
  - CARDIAC ARREST [None]
  - DYSPNOEA [None]
